FAERS Safety Report 12400806 (Version 2)
Quarter: 2016Q2

REPORT INFORMATION
  Report Type: Spontaneous
  Country: US (occurrence: US)
  Receive Date: 20160525
  Receipt Date: 20160525
  Transmission Date: 20160815
  Serious: No
  Sender: FDA-Public Use
  Company Number: US-SA-2015SA125549

PATIENT
  Sex: Female

DRUGS (4)
  1. LASIX [Concomitant]
     Active Substance: FUROSEMIDE
  2. SOLOSTAR [Concomitant]
     Active Substance: DEVICE
     Dates: start: 201503
  3. LANTUS SOLOSTAR [Suspect]
     Active Substance: INSULIN GLARGINE
     Indication: TYPE 2 DIABETES MELLITUS
     Dosage: DOSE:30 UNIT(S)
     Route: 065
     Dates: start: 201503
  4. TOPROL XL [Interacting]
     Active Substance: METOPROLOL SUCCINATE
     Indication: HYPERTENSION
     Route: 065

REACTIONS (4)
  - Oedema peripheral [Unknown]
  - Abdominal distension [Unknown]
  - Weight increased [Unknown]
  - Drug interaction [Unknown]

NARRATIVE: CASE EVENT DATE: 201506
